FAERS Safety Report 7892597-4 (Version None)
Quarter: 2011Q4

REPORT INFORMATION
  Report Type: 
  Country: None (occurrence: None)
  Receive Date: 20111027
  Receipt Date: 20111018
  Transmission Date: 20120403
  Serious: Yes (Other)
  Sender: FDA-Public Use
  Company Number: 2010026943

PATIENT
  Age: 66 Year
  Sex: Female
  Weight: 76.2043 kg

DRUGS (35)
  1. HIZENTRA [Suspect]
  2. HIZENTRA [Suspect]
  3. HIZENTRA [Suspect]
  4. HIZENTRA [Suspect]
  5. ALPRAZOLAM EXTENDED-RELEASE [Concomitant]
  6. CLARITHROMYCIN [Concomitant]
  7. LASIX [Concomitant]
  8. HIZENTRA [Suspect]
  9. HIZENTRA [Suspect]
  10. HIZENTRA [Suspect]
  11. HIZENTRA [Suspect]
  12. VOLTURNO (ALISKIREN) [Suspect]
     Dosage: (300/320 MG DAILY)
  13. DOMPERIDONE (DOMPERIDONE) [Concomitant]
  14. LIPITOR [Concomitant]
  15. FLUCONAZOLE [Concomitant]
  16. CALTRATE (CALCIUM CARBONATE) [Concomitant]
  17. AMOXICILLIN [Concomitant]
  18. HIZENTRA [Suspect]
  19. HIZENTRA [Suspect]
  20. HIZENTRA [Suspect]
  21. HIZENTRA [Suspect]
  22. POTASSIUM CHLORIDE [Concomitant]
  23. ROPINIROLE [Concomitant]
  24. BACTRIM [Concomitant]
  25. HIZENTRA [Suspect]
  26. HIZENTRA [Suspect]
  27. UROXATRAL [Concomitant]
  28. SODIUM BICARBONATE IN PLASTIC CONTAINER [Concomitant]
  29. FOLBIC (ACCOMIN MULTIVITAMIN) [Concomitant]
  30. PRILOSEC [Concomitant]
  31. IBUPROFEN [Concomitant]
  32. HIZENTRA [Suspect]
     Indication: IMMUNODEFICIENCY COMMON VARIABLE
  33. HIZENTRA [Suspect]
     Indication: SELECTIVE IGA IMMUNODEFICIENCY
  34. HIZENTRA [Suspect]
  35. DIOVAN [Concomitant]

REACTIONS (8)
  - BRONCHITIS [None]
  - URINARY TRACT INFECTION [None]
  - BLOOD SODIUM DECREASED [None]
  - HYPOTENSION [None]
  - INFUSION SITE PRURITUS [None]
  - NAUSEA [None]
  - INFUSION RELATED REACTION [None]
  - INFUSION SITE SWELLING [None]
